APPROVED DRUG PRODUCT: PIPRACIL
Active Ingredient: PIPERACILLIN SODIUM
Strength: EQ 3GM BASE/VIAL
Dosage Form/Route: INJECTABLE;INJECTION
Application: A062750 | Product #002
Applicant: WYETH PHARMACEUTICALS INC
Approved: Oct 13, 1987 | RLD: No | RS: No | Type: DISCN